FAERS Safety Report 23378683 (Version 2)
Quarter: 2024Q1

REPORT INFORMATION
  Report Type: Report from Study
  Country: IT (occurrence: IT)
  Receive Date: 20240108
  Receipt Date: 20240111
  Transmission Date: 20240410
  Serious: Yes (Hospitalization)
  Sender: FDA-Public Use
  Company Number: None

PATIENT
  Age: 87 Year
  Sex: Male

DRUGS (7)
  1. LEVOTHYROXINE SODIUM [Suspect]
     Active Substance: LEVOTHYROXINE SODIUM
     Indication: Product used for unknown indication
     Dosage: EUTHYROX 50 TABLETS 125 MCG ORAL ROUTE 1 TABLET AT 08:00
     Route: 048
  2. PANTOPRAZOLE SODIUM [Suspect]
     Active Substance: PANTOPRAZOLE SODIUM
     Indication: Product used for unknown indication
     Dosage: 28 GASTRORESISTANT TABLETS, ORAL ROUTE, 1GR TABLET AT 8:00
     Route: 048
  3. HYDROCHLOROTHIAZIDE\LOSARTAN POTASSIUM [Suspect]
     Active Substance: HYDROCHLOROTHIAZIDE\LOSARTAN POTASSIUM
     Indication: Product used for unknown indication
     Dosage: 14 FILM COATED TABLETS 50+12 MG ORAL ROUTE, 1 FILM COATED TABLET AT 08:00
     Route: 048
  4. TAMSULOSIN [Suspect]
     Active Substance: TAMSULOSIN
     Indication: Product used for unknown indication
     Dosage: 20 TABLETS 0.4 MG MODIFIED RELEASE, 1 HARD TABLET MODIFIED RELEASE AT 22:00
     Route: 048
  5. BROTIZOLAM [Interacting]
     Active Substance: BROTIZOLAM
     Indication: Product used for unknown indication
     Dosage: 30 TABLETS 0.25 MG, ORAL ROUTE, 1 TABLET AT 22:00
     Route: 048
  6. NALOXONE HYDROCHLORIDE\OXYCODONE HYDROCHLORIDE [Interacting]
     Active Substance: NALOXONE HYDROCHLORIDE\OXYCODONE HYDROCHLORIDE
     Indication: Product used for unknown indication
     Dosage: 28 TABLETS 5 MG + 2.5 MG EXTENDED RELEASE, 1 ER TABLET AT 08:00 AND AT 20:00
     Route: 048
  7. DUTASTERIDE [Concomitant]
     Active Substance: DUTASTERIDE
     Indication: Product used for unknown indication
     Dosage: 30 TABLETS 0.5 MG ORAL ROUTE 1 MG AT 12:00
     Route: 048

REACTIONS (4)
  - Hypokalaemia [Unknown]
  - Pneumothorax [Unknown]
  - Oliguria [Unknown]
  - Dyspnoea [Unknown]

NARRATIVE: CASE EVENT DATE: 20231221
